FAERS Safety Report 5022468-2 (Version None)
Quarter: 2006Q2

REPORT INFORMATION
  Report Type: 
  Country: None (occurrence: None)
  Receive Date: 20060609
  Receipt Date: 20060601
  Transmission Date: 20061013
  Serious: Yes (Hospitalization)
  Sender: FDA-Public Use
  Company Number: PL-ROCHE-450224

PATIENT
  Age: 66 Year
  Sex: Female

DRUGS (1)
  1. TICLOPIDINE HCL [Suspect]
     Indication: CARDIOVASCULAR EVENT PROPHYLAXIS
     Route: 048

REACTIONS (4)
  - PANCYTOPENIA [None]
  - PNEUMONIA [None]
  - RASH [None]
  - SEPTIC SHOCK [None]
